FAERS Safety Report 24548524 (Version 1)
Quarter: 2024Q4

REPORT INFORMATION
  Report Type: Spontaneous
  Country: JP (occurrence: JP)
  Receive Date: 20241025
  Receipt Date: 20241025
  Transmission Date: 20250115
  Serious: Yes (Death, Other)
  Sender: Teyro Labs
  Company Number: JP-TEYRO-2024-TY-000775

PATIENT

DRUGS (3)
  1. GEMCITABINE [Suspect]
     Active Substance: GEMCITABINE
     Indication: Ductal adenocarcinoma of pancreas
     Dosage: ON DAYS 1, 8, AND 15 OF EACH 28-DAY CYCLE
     Route: 065
  2. PACLITAXEL [Suspect]
     Active Substance: PACLITAXEL
     Indication: Ductal adenocarcinoma of pancreas
     Dosage: ON DAYS 1, 8, AND 15 OF EACH 28-DAY CYCLE
     Route: 065
  3. GALINPEPIMUT-S [Suspect]
     Active Substance: GALINPEPIMUT-S
     Indication: Ductal adenocarcinoma of pancreas
     Dosage: EVERY 2 WEEKS FOR THE FIRST 6 DOSES AND EVERY 4 WEEKS THEREAFTER
     Route: 023

REACTIONS (2)
  - Neoplasm recurrence [Fatal]
  - Therapy partial responder [Unknown]
